FAERS Safety Report 10039429 (Version 2)
Quarter: 2014Q1

REPORT INFORMATION
  Report Type: Report from Study
  Country: MX (occurrence: MX)
  Receive Date: 20140326
  Receipt Date: 20140326
  Transmission Date: 20141002
  Serious: Yes (Death)
  Sender: FDA-Public Use
  Company Number: PHHY2013MX058936

PATIENT
  Age: 86 Year
  Sex: Male

DRUGS (3)
  1. ONBREZ [Suspect]
     Indication: CHRONIC OBSTRUCTIVE PULMONARY DISEASE
     Dosage: 150 UG, DAILY
     Route: 048
  2. CRESTOR [Concomitant]
     Dosage: 1 DF, DAILY
  3. DOLO NEUROBION [Concomitant]
     Dosage: 2 DF, DAILY

REACTIONS (2)
  - Death [Fatal]
  - Diarrhoea [Unknown]
